FAERS Safety Report 14482496 (Version 1)
Quarter: 2018Q1

REPORT INFORMATION
  Report Type: Report from Study
  Country: None (occurrence: US)
  Receive Date: 20180202
  Receipt Date: 20180202
  Transmission Date: 20180509
  Serious: Yes (Death, Hospitalization, Other)
  Sender: FDA-Public Use
  Company Number: US-ABBVIE-18K-163-2222746-00

PATIENT
  Sex: Male
  Weight: 149.37 kg

DRUGS (5)
  1. PRAVASTATIN. [Concomitant]
     Active Substance: PRAVASTATIN
     Indication: BLOOD CHOLESTEROL INCREASED
  2. HUMIRA [Suspect]
     Active Substance: ADALIMUMAB
     Indication: PSORIASIS
     Route: 058
     Dates: start: 201704, end: 201712
  3. ASPIRIN. [Concomitant]
     Active Substance: ASPIRIN
     Indication: CARDIAC DISORDER
  4. TAMSULOSIN [Concomitant]
     Active Substance: TAMSULOSIN
     Indication: PROSTATOMEGALY
  5. LOSARTAN. [Concomitant]
     Active Substance: LOSARTAN
     Indication: HYPERTENSION

REACTIONS (5)
  - Thrombosis in device [Not Recovered/Not Resolved]
  - Peritonitis [Not Recovered/Not Resolved]
  - Hypophagia [Not Recovered/Not Resolved]
  - Device related infection [Not Recovered/Not Resolved]
  - Pneumonia [Fatal]

NARRATIVE: CASE EVENT DATE: 201712
